FAERS Safety Report 9124681 (Version 2)
Quarter: 2013Q1

REPORT INFORMATION
  Report Type: Spontaneous
  Country: US (occurrence: US)
  Receive Date: 20130116
  Receipt Date: 20130304
  Transmission Date: 20140127
  Serious: Yes (Other)
  Sender: FDA-Public Use
  Company Number: US-BAYER-2013-005509

PATIENT
  Age: 39 Year
  Sex: Female

DRUGS (1)
  1. MIRENA [Suspect]
     Indication: MENORRHAGIA
     Dosage: 20 MCG/24HR, CONT
     Route: 015
     Dates: start: 20120626, end: 20130214

REACTIONS (7)
  - Post procedural haemorrhage [None]
  - Device dislocation [None]
  - Weight increased [None]
  - Feeling abnormal [None]
  - Abdominal pain upper [None]
  - Asthenia [None]
  - Back pain [None]
